FAERS Safety Report 11315466 (Version 2)
Quarter: 2015Q3

REPORT INFORMATION
  Report Type: Report from Study
  Country: JP (occurrence: JP)
  Receive Date: 20150728
  Receipt Date: 20150908
  Transmission Date: 20151125
  Serious: Yes (Death, Hospitalization)
  Sender: FDA-Public Use
  Company Number: JP-ROCHE-1609881

PATIENT
  Age: 86 Year
  Sex: Female
  Weight: 38.6 kg

DRUGS (41)
  1. MYSLEE [Concomitant]
     Active Substance: ZOLPIDEM TARTRATE
     Dosage: WHEN IT IS NOT POSSIBLE TO SLEEP
     Route: 048
  2. ALOSENN [Concomitant]
     Active Substance: SENNA LEAF
     Route: 048
     Dates: start: 20130619, end: 20130619
  3. ADALAT CC [Concomitant]
     Active Substance: NIFEDIPINE
     Route: 048
     Dates: start: 20130821, end: 20140710
  4. SOLDEM 1 [Concomitant]
     Active Substance: DEXTROSE\SODIUM CHLORIDE\SODIUM LACTATE
     Indication: PROPHYLAXIS
     Route: 042
     Dates: start: 20140517, end: 20140517
  5. BAYASPIRIN [Concomitant]
     Active Substance: ASPIRIN
     Route: 048
     Dates: end: 20140610
  6. KALIMATE [Concomitant]
     Active Substance: CALCIUM POLYSTYRENE SULFONATE
     Indication: PROPHYLAXIS
     Route: 048
     Dates: start: 20140517, end: 20140524
  7. SEISHOKU [Concomitant]
     Active Substance: SODIUM CHLORIDE
     Indication: PROPHYLAXIS
     Route: 042
     Dates: start: 20131231, end: 20140114
  8. HEPARIN [Concomitant]
     Active Substance: HEPARIN SODIUM
     Indication: PROPHYLAXIS
     Route: 042
     Dates: start: 20140517, end: 20140527
  9. LASIX [Concomitant]
     Active Substance: FUROSEMIDE
     Indication: NEPHROSCLEROSIS
     Route: 048
     Dates: end: 20130619
  10. LASIX [Concomitant]
     Active Substance: FUROSEMIDE
     Route: 048
     Dates: start: 20130417, end: 20140710
  11. ADALAT CC [Concomitant]
     Active Substance: NIFEDIPINE
     Route: 048
     Dates: end: 20140610
  12. MOHRUS TAPE L [Concomitant]
     Dosage: WHOLE BODY (EXTERNAL APPLICATION OF SPREADING WHOLE BODY)
     Route: 061
     Dates: start: 20131225, end: 20140129
  13. DORNER [Concomitant]
     Active Substance: BERAPROST SODIUM
     Route: 048
     Dates: start: 20140517, end: 20140524
  14. SAWACILLIN [Concomitant]
     Active Substance: AMOXICILLIN
     Indication: PROPHYLAXIS
     Route: 048
     Dates: start: 20140523, end: 20140527
  15. ADONA (JAPAN) [Concomitant]
     Indication: PROPHYLAXIS
     Route: 048
     Dates: start: 20140528, end: 20140603
  16. METHOXY POLYETHYLENE GLYCOL-EPOETIN BETA [Suspect]
     Active Substance: METHOXY POLYETHYLENE GLYCOL-EPOETIN BETA
     Indication: NEPHROGENIC ANAEMIA
     Route: 058
     Dates: start: 20131105, end: 20140121
  17. ADALAT CC [Concomitant]
     Active Substance: NIFEDIPINE
     Route: 048
     Dates: end: 20130821
  18. ADALAT CC [Concomitant]
     Active Substance: NIFEDIPINE
     Route: 048
     Dates: start: 20130822
  19. RINDERON VG [Concomitant]
     Active Substance: BETAMETHASONE VALERATE\GENTAMICIN SULFATE
     Dosage: WHEN IT IS THE PROPER QUANTITY ITCHY
     Route: 003
     Dates: start: 20130614, end: 20130903
  20. ROCEPHIN [Concomitant]
     Active Substance: CEFTRIAXONE SODIUM
     Indication: PROPHYLAXIS
     Route: 042
     Dates: start: 20140105, end: 20140114
  21. HUMAN RED BLOOD CELLS [Concomitant]
     Active Substance: HUMAN RED BLOOD CELL
     Indication: PROPHYLAXIS
     Dosage: EVERY OTHER DAY?CONCENTRATED
     Route: 042
     Dates: start: 20140517, end: 20140519
  22. FESIN (JAPAN) [Concomitant]
     Active Substance: IRON SUCROSE
     Indication: PROPHYLAXIS
     Route: 042
     Dates: start: 20140527, end: 20140601
  23. GLUCOSE [Concomitant]
     Active Substance: DEXTROSE
     Indication: PROPHYLAXIS
     Route: 042
     Dates: start: 20140527, end: 20140601
  24. METHOXY POLYETHYLENE GLYCOL-EPOETIN BETA [Suspect]
     Active Substance: METHOXY POLYETHYLENE GLYCOL-EPOETIN BETA
     Indication: NEPHROGENIC ANAEMIA
     Route: 058
     Dates: start: 20140218, end: 20140520
  25. FEBURIC [Concomitant]
     Active Substance: FEBUXOSTAT
     Route: 048
     Dates: start: 20130514, end: 20130614
  26. DORNER [Concomitant]
     Active Substance: BERAPROST SODIUM
     Route: 048
     Dates: start: 20131227, end: 20140103
  27. CALONAL [Concomitant]
     Active Substance: ACETAMINOPHEN
     Dosage: WHEN IT IS PAINFUL
     Route: 048
     Dates: start: 20140519, end: 20140523
  28. D-SORBITOL [Concomitant]
     Route: 048
     Dates: start: 20140601, end: 20140610
  29. METHOXY POLYETHYLENE GLYCOL-EPOETIN BETA [Suspect]
     Active Substance: METHOXY POLYETHYLENE GLYCOL-EPOETIN BETA
     Indication: NEPHROGENIC ANAEMIA
     Route: 058
     Dates: start: 20130416, end: 20130712
  30. METHOXY POLYETHYLENE GLYCOL-EPOETIN BETA [Suspect]
     Active Substance: METHOXY POLYETHYLENE GLYCOL-EPOETIN BETA
     Indication: NEPHROGENIC ANAEMIA
     Dosage: MOST RECENTDOSE PRIOR TO THE EVENT: 20/MAY/2014
     Route: 058
     Dates: start: 20130809, end: 20131001
  31. ALOSENN [Concomitant]
     Active Substance: SENNA LEAF
     Route: 048
     Dates: end: 20130820
  32. ALFAROL [Concomitant]
     Active Substance: ALFACALCIDOL
     Route: 048
     Dates: end: 20140610
  33. FOSAMAC [Concomitant]
     Active Substance: ALENDRONATE SODIUM
     Dosage: AT GETTING UP
     Route: 048
     Dates: end: 20140604
  34. FERROMIA [Concomitant]
     Active Substance: FERROUS CITRATE
     Indication: NEPHROSCLEROSIS
     Route: 048
     Dates: start: 20130713, end: 20130810
  35. LOXONIN [Concomitant]
     Active Substance: LOXOPROFEN SODIUM
     Route: 061
     Dates: start: 20130712
  36. CRAVIT [Concomitant]
     Active Substance: LEVOFLOXACIN
     Indication: PROPHYLAXIS
     Route: 048
     Dates: start: 20140526, end: 20140606
  37. LASIX [Concomitant]
     Active Substance: FUROSEMIDE
     Route: 048
     Dates: start: 20130620, end: 20140612
  38. MEYLON (JAPAN) [Concomitant]
     Indication: PROPHYLAXIS
     Dosage: ONLY ON THE FIRST
     Route: 042
     Dates: start: 20140517, end: 20140517
  39. TAKEPRON [Concomitant]
     Active Substance: LANSOPRAZOLE
     Route: 048
     Dates: end: 20140610
  40. ALOSITOL [Concomitant]
     Active Substance: ALLOPURINOL
     Route: 048
     Dates: start: 20140528, end: 20140610
  41. ROCEPHIN [Concomitant]
     Active Substance: CEFTRIAXONE SODIUM
     Indication: PROPHYLAXIS
     Route: 042
     Dates: start: 20131231, end: 20140104

REACTIONS (4)
  - Gastrointestinal necrosis [Fatal]
  - Renal failure [Fatal]
  - Gangrene [Not Recovered/Not Resolved]
  - Anaemia [Recovering/Resolving]

NARRATIVE: CASE EVENT DATE: 20131225
